FAERS Safety Report 21637397 (Version 4)
Quarter: 2024Q1

REPORT INFORMATION
  Report Type: Other
  Country: IT (occurrence: None)
  Receive Date: 20221124
  Receipt Date: 20240218
  Transmission Date: 20240410
  Serious: No
  Sender: FDA-Public Use
  Company Number: IT-ROCHE-3224654

PATIENT
  Age: 23 Year
  Sex: Male
  Weight: 86 kg

DRUGS (10)
  1. OCRELIZUMAB [Suspect]
     Active Substance: OCRELIZUMAB
     Indication: Relapsing-remitting multiple sclerosis
     Dosage: TOTAL VOLUME ADMINISTERED 260 ML
     Route: 042
     Dates: start: 20191106, end: 20191106
  2. OCRELIZUMAB [Suspect]
     Active Substance: OCRELIZUMAB
     Dosage: TOTAL VOLUME ADMINISTERED 260 ML
     Route: 042
     Dates: start: 20191120, end: 20191120
  3. OCRELIZUMAB [Suspect]
     Active Substance: OCRELIZUMAB
     Dosage: TOTAL VOLUME ADMINISTERED 520 ML
     Route: 042
     Dates: start: 20200619, end: 20200619
  4. OCRELIZUMAB [Suspect]
     Active Substance: OCRELIZUMAB
     Dosage: TOTAL VOLUME ADMINISTERED 520 ML
     Route: 042
     Dates: start: 20201211, end: 20201211
  5. OCRELIZUMAB [Suspect]
     Active Substance: OCRELIZUMAB
     Dosage: TOTAL VOLUME ADMINISTERED 520 ML
     Route: 042
     Dates: start: 20210611, end: 20210611
  6. OCRELIZUMAB [Suspect]
     Active Substance: OCRELIZUMAB
     Dosage: TOTAL VOLUME ADMINISTERED 520 ML
     Route: 042
     Dates: start: 20211203, end: 20211203
  7. OCRELIZUMAB [Suspect]
     Active Substance: OCRELIZUMAB
     Dosage: TOTAL VOLUME ADMINISTERED 520 ML
     Route: 042
     Dates: start: 20220601, end: 20220601
  8. OCRELIZUMAB [Suspect]
     Active Substance: OCRELIZUMAB
     Dosage: TOTAL VOLUME ADMINISTERED 520 ML
     Route: 042
     Dates: start: 20221125, end: 20221125
  9. OCRELIZUMAB [Suspect]
     Active Substance: OCRELIZUMAB
     Dosage: TOTAL VOLUME ADMINISTERED 520 ML
     Route: 042
     Dates: start: 20230519, end: 20230519
  10. CARBONE ATTIVO [Concomitant]
     Route: 048
     Dates: start: 202109, end: 202205

REACTIONS (1)
  - COVID-19 [Recovered/Resolved]

NARRATIVE: CASE EVENT DATE: 20220425
